FAERS Safety Report 5680551-2 (Version None)
Quarter: 2008Q1

REPORT INFORMATION
  Report Type: 
  Country: None (occurrence: None)
  Receive Date: 20080326
  Receipt Date: 20080321
  Transmission Date: 20080703
  Serious: Yes (Death)
  Sender: FDA-Public Use
  Company Number: JP-MERCK-0803USA03683

PATIENT
  Age: 57 Year
  Sex: Female

DRUGS (1)
  1. ZOCOR [Suspect]
     Indication: CAROTID INTIMA-MEDIA THICKNESS INCREASED
     Route: 048
     Dates: start: 20080317, end: 20080321

REACTIONS (1)
  - DEATH [None]
